FAERS Safety Report 18958098 (Version 1)
Quarter: 2021Q1

REPORT INFORMATION
  Report Type: Spontaneous
  Country: US (occurrence: US)
  Receive Date: 20210302
  Receipt Date: 20210302
  Transmission Date: 20210420
  Serious: Yes (Other)
  Sender: FDA-Public Use
  Company Number: None

PATIENT
  Age: 16 Year
  Sex: Female
  Weight: 59.9 kg

DRUGS (2)
  1. ETONOGESTREL?ETHINYL ESTRADIOL VAGINAL RING [Suspect]
     Active Substance: ETHINYL ESTRADIOL\ETONOGESTREL
     Indication: MENORRHAGIA
     Dates: end: 20200511
  2. GENERIC NUVARING [Concomitant]
     Active Substance: ETHINYL ESTRADIOL\ETONOGESTREL
     Dates: start: 20200401, end: 20200511

REACTIONS (5)
  - Pelvic pain [None]
  - Menstruation irregular [None]
  - Menorrhagia [None]
  - Product substitution issue [None]
  - Affective disorder [None]

NARRATIVE: CASE EVENT DATE: 20200511
